FAERS Safety Report 18359789 (Version 1)
Quarter: 2020Q4

REPORT INFORMATION
  Report Type: Spontaneous
  Country: FR (occurrence: FR)
  Receive Date: 20201008
  Receipt Date: 20201008
  Transmission Date: 20210114
  Serious: Yes (Other)
  Sender: FDA-Public Use
  Company Number: FR-VIIV HEALTHCARE LIMITED-FR2020197837

PATIENT
  Age: 52 Year
  Sex: Female
  Weight: 59 kg

DRUGS (1)
  1. JULUCA [Suspect]
     Active Substance: DOLUTEGRAVIR SODIUM\RILPIVIRINE HYDROCHLORIDE
     Indication: HIV INFECTION
     Dosage: 1 DF, QD
     Route: 048
     Dates: start: 20190830, end: 20200602

REACTIONS (1)
  - Lichenoid keratosis [Recovering/Resolving]

NARRATIVE: CASE EVENT DATE: 20200210
